FAERS Safety Report 22304213 (Version 2)
Quarter: 2023Q2

REPORT INFORMATION
  Report Type: Spontaneous
  Country: IR (occurrence: IR)
  Receive Date: 20230510
  Receipt Date: 20230518
  Transmission Date: 20230721
  Serious: Yes (Life-Threatening, Hospitalization, Other)
  Sender: FDA-Public Use
  Company Number: IR-SUN PHARMACEUTICAL INDUSTRIES LTD-2023R1-388085

PATIENT
  Age: 6 Year
  Sex: Female

DRUGS (6)
  1. AZITHROMYCIN [Suspect]
     Active Substance: AZITHROMYCIN
     Indication: Product used for unknown indication
     Dosage: 100 MG/10 ML , DAILY
     Route: 065
  2. CEFTRIAXONE [Suspect]
     Active Substance: CEFTRIAXONE
     Indication: Product used for unknown indication
     Dosage: 500 MILLIGRAM, BID
     Route: 042
  3. MIDAZOLAM [Suspect]
     Active Substance: MIDAZOLAM
     Indication: Generalised tonic-clonic seizure
     Dosage: 5 MILLIGRAM, BID
     Route: 042
  4. VINCRISTINE [Suspect]
     Active Substance: VINCRISTINE
     Indication: Acute lymphocytic leukaemia
     Dosage: UNK
     Route: 065
  5. LEVETIRACETAM [Concomitant]
     Active Substance: LEVETIRACETAM
     Indication: Generalised tonic-clonic seizure
     Dosage: UNK
     Route: 065
  6. PHENYTOIN [Concomitant]
     Active Substance: PHENYTOIN
     Indication: Generalised tonic-clonic seizure
     Dosage: UNK
     Route: 065

REACTIONS (5)
  - COVID-19 [Unknown]
  - Cerebrovascular accident [Unknown]
  - Paralysis [Recovering/Resolving]
  - Ischaemia [Unknown]
  - Speech disorder [Recovering/Resolving]
